FAERS Safety Report 23569469 (Version 2)
Quarter: 2024Q1

REPORT INFORMATION
  Report Type: Report from Study
  Country: FR (occurrence: FR)
  Receive Date: 20240227
  Receipt Date: 20240328
  Transmission Date: 20240410
  Serious: Yes (Hospitalization, Other)
  Sender: FDA-Public Use
  Company Number: FR-JNJFOC-20240255144

PATIENT
  Sex: Female

DRUGS (9)
  1. TECVAYLI [Suspect]
     Active Substance: TECLISTAMAB-CQYV
     Indication: Plasma cell myeloma
     Route: 058
     Dates: start: 20220820, end: 20220820
  2. TECVAYLI [Suspect]
     Active Substance: TECLISTAMAB-CQYV
     Dosage: STEP-UP DOSE 2
     Route: 058
     Dates: start: 20220823, end: 20220823
  3. TECVAYLI [Suspect]
     Active Substance: TECLISTAMAB-CQYV
     Dosage: FIRST MAINTENANCE DOSE
     Route: 058
     Dates: start: 20220827, end: 20220827
  4. SILVER SULFADIAZINE [Concomitant]
     Active Substance: SILVER SULFADIAZINE
     Indication: Adverse event
     Route: 065
     Dates: start: 20221024, end: 20221202
  5. FUNGIZONE [Concomitant]
     Active Substance: AMPHOTERICIN B
     Indication: Adverse event
     Route: 065
     Dates: start: 20221201, end: 20221201
  6. PREDNISONE [Concomitant]
     Active Substance: PREDNISONE
     Indication: Adverse event
     Route: 065
     Dates: start: 20221024, end: 20221128
  7. BETAMETHASONE [Concomitant]
     Active Substance: BETAMETHASONE\BETAMETHASONE DIPROPIONATE
     Indication: Adverse event
     Route: 065
     Dates: start: 20221024, end: 20221201
  8. ANTIHISTAMINES NOS [Concomitant]
     Active Substance: ANTIHISTAMINES NOS
     Indication: Prophylaxis
     Dates: start: 20220820, end: 20221201
  9. CLOBETASOL PROPIONATE [Concomitant]
     Active Substance: CLOBETASOL PROPIONATE
     Indication: Adverse event
     Dates: start: 20221024, end: 20221201

REACTIONS (6)
  - Pleurisy [Recovering/Resolving]
  - Bronchopulmonary aspergillosis [Recovering/Resolving]
  - Oral candidiasis [Recovering/Resolving]
  - Pyrexia [Recovered/Resolved]
  - Cough [Recovering/Resolving]
  - Dyspnoea [Recovering/Resolving]

NARRATIVE: CASE EVENT DATE: 20221201
